FAERS Safety Report 9244937 (Version 1)
Quarter: 2013Q1

REPORT INFORMATION
  Report Type: Spontaneous
  Country: US (occurrence: None)
  Receive Date: 20121130
  Receipt Date: 20121130
  Transmission Date: 20140127
  Serious: Yes (Other)
  Sender: FDA-Public Use
  Company Number: PHEH2012US000548

PATIENT
  Age: 55 Year
  Sex: Male

DRUGS (1)
  1. TERBINAFINE [Suspect]
     Dosage: 250MG, QD

REACTIONS (5)
  - Depressed mood [None]
  - Vomiting [None]
  - Diarrhoea [None]
  - Abdominal discomfort [None]
  - Rash [None]
